FAERS Safety Report 18911303 (Version 1)
Quarter: 2021Q1

REPORT INFORMATION
  Report Type: Spontaneous
  Country: US (occurrence: US)
  Receive Date: 20210218
  Receipt Date: 20210218
  Transmission Date: 20210420
  Serious: No
  Sender: FDA-Public Use
  Company Number: US-PFIZER INC-2021147216

PATIENT

DRUGS (1)
  1. RELPAX [Suspect]
     Active Substance: ELETRIPTAN HYDROBROMIDE
     Dosage: UNK, AS NEEDED

REACTIONS (4)
  - Abdominal discomfort [Unknown]
  - Gastrointestinal pain [Unknown]
  - Limb discomfort [Unknown]
  - Pain in extremity [Unknown]
